FAERS Safety Report 26022799 (Version 1)
Quarter: 2025Q4

REPORT INFORMATION
  Report Type: Other
  Country: US (occurrence: US)
  Receive Date: 20251110
  Receipt Date: 20251110
  Transmission Date: 20260117
  Serious: Yes (Other)
  Sender: MADRIGAL PHARMACEUTICALS
  Company Number: US-MADRIGAL PHARMACEUTICALS, INC-2025USREZ13626

PATIENT

DRUGS (1)
  1. REZDIFFRA [Suspect]
     Active Substance: RESMETIROM
     Indication: Hepatic steatosis
     Dosage: 80 MILLIGRAM, QD
     Route: 048
     Dates: start: 202501, end: 2025

REACTIONS (4)
  - Hepatic cirrhosis [Unknown]
  - Seizure [Unknown]
  - Hepatic steatosis [Unknown]
  - Disease progression [Unknown]

NARRATIVE: CASE EVENT DATE: 20250101
